FAERS Safety Report 10131577 (Version 2)
Quarter: 2014Q2

REPORT INFORMATION
  Report Type: Spontaneous
  Country: US (occurrence: US)
  Receive Date: 20140428
  Receipt Date: 20140617
  Transmission Date: 20141212
  Serious: Yes (Death)
  Sender: FDA-Public Use
  Company Number: US-CELGENEUS-163-21660-14044840

PATIENT
  Age: 71 Year
  Sex: Female

DRUGS (1)
  1. ABRAXANE [Suspect]
     Indication: NEOPLASM MALIGNANT
     Route: 065

REACTIONS (1)
  - Neoplasm progression [Fatal]
